FAERS Safety Report 10258541 (Version 1)
Quarter: 2014Q2

REPORT INFORMATION
  Report Type: Spontaneous
  Country: US (occurrence: None)
  Receive Date: 20140624
  Receipt Date: 20140624
  Transmission Date: 20141212
  Serious: Yes (Other)
  Sender: FDA-Public Use
  Company Number: None

PATIENT
  Age: 48 Year
  Sex: Female
  Weight: 48.08 kg

DRUGS (1)
  1. NEURONTIN [Suspect]
     Indication: EPILEPSY
     Dosage: 3 PILLS A DAY THREE TIMES DAILY TAKEN BY MOUTH
     Route: 048
     Dates: start: 20130511

REACTIONS (3)
  - Affective disorder [None]
  - Respiratory disorder [None]
  - Coma [None]
